FAERS Safety Report 8665461 (Version 2)
Quarter: 2013Q2

REPORT INFORMATION
  Report Type: Spontaneous
  Country: JP (occurrence: JP)
  Receive Date: 20120716
  Receipt Date: 20130501
  Transmission Date: 20140414
  Serious: Yes (Other)
  Sender: FDA-Public Use
  Company Number: JP-MILLENNIUM PHARMACEUTICALS, INC.-2012-04772

PATIENT
  Sex: 0

DRUGS (6)
  1. VELCADE [Suspect]
     Indication: PLASMA CELL MYELOMA
     Dosage: 1 MG/M2, UNK
     Route: 042
     Dates: start: 201101
  2. DEXAMETHASONE [Concomitant]
     Indication: PLASMA CELL MYELOMA
     Dosage: 20 MG, UNK
     Dates: start: 201101
  3. TRIMETHOPRIM SULFAMETHOXAZOLE [Concomitant]
     Indication: PROPHYLAXIS
  4. ACYCLOVIR                          /00587301/ [Concomitant]
     Indication: PROPHYLAXIS
  5. MECOBALAMIN [Concomitant]
     Indication: NEUROPATHY PERIPHERAL
  6. GOSHAJINKIGAN [Concomitant]
     Indication: NEUROPATHY PERIPHERAL

REACTIONS (2)
  - Hepatitis B [Recovered/Resolved]
  - Peripheral sensory neuropathy [Unknown]
